FAERS Safety Report 5291337-5 (Version None)
Quarter: 2007Q2

REPORT INFORMATION
  Report Type: 
  Country: None (occurrence: None)
  Receive Date: 20070409
  Receipt Date: 20070404
  Transmission Date: 20071010
  Serious: Yes (Hospitalization, Other)
  Sender: FDA-Public Use
  Company Number: US-MERCK-0704USA00783

PATIENT
  Age: 56 Year
  Sex: Male

DRUGS (2)
  1. PRINIVIL [Suspect]
     Indication: HYPERTENSION
     Route: 048
     Dates: start: 20070301, end: 20070328
  2. PRINIVIL [Suspect]
     Route: 048
     Dates: start: 20050101, end: 20070301

REACTIONS (2)
  - HEART RATE INCREASED [None]
  - HYPOTENSION [None]
